FAERS Safety Report 6326308-0 (Version None)
Quarter: 2009Q3

REPORT INFORMATION
  Report Type: 
  Country: None (occurrence: None)
  Receive Date: 20090820
  Receipt Date: 20090818
  Transmission Date: 20100115
  Serious: Yes (Disabling)
  Sender: FDA-Public Use
  Company Number: 2009009021

PATIENT
  Age: 55 Year
  Sex: Male

DRUGS (2)
  1. TREANDA [Suspect]
     Indication: CHRONIC LYMPHOCYTIC LEUKAEMIA
     Dosage: (247 MG, INTRAVENOUS DRIP
     Route: 041
     Dates: start: 20090625
  2. RITUXAN [Suspect]
     Dosage: (775 MG)
     Dates: start: 20090624

REACTIONS (4)
  - HYPERSENSITIVITY [None]
  - PAIN IN JAW [None]
  - SWELLING FACE [None]
  - TOOTH ABSCESS [None]
